FAERS Safety Report 9580416 (Version 1)
Quarter: 2013Q3

REPORT INFORMATION
  Report Type: Spontaneous
  Country: GB (occurrence: None)
  Receive Date: 20130930
  Receipt Date: 20130930
  Transmission Date: 20140515
  Serious: Yes (Hospitalization)
  Sender: FDA-Public Use
  Company Number: GER/UKI/13/0034719

PATIENT
  Age: 75 Year
  Sex: Male

DRUGS (7)
  1. PIOGLITAZONE (PIOGLITAZONE) [Suspect]
     Indication: DIABETES MELLITUS
     Dates: end: 20121218
  2. ADENURIC (FEBUXOSTAT) [Suspect]
     Indication: URATE NEPHROPATHY
     Route: 048
     Dates: start: 20120903, end: 20121014
  3. ARANESP (DARBEPOETIN ALFA) [Concomitant]
  4. ATORVASTATIN (ATORVASTATIN) [Concomitant]
  5. COLCHICINE (COLCHICINE) [Concomitant]
  6. FUROSEMIDE (FUROSEMIDE) [Concomitant]
  7. MAXITROL (MAXITROL) [Concomitant]

REACTIONS (4)
  - Liver disorder [None]
  - Jaundice cholestatic [None]
  - Oedema peripheral [None]
  - Dyspnoea [None]
